FAERS Safety Report 5166926-9 (Version None)
Quarter: 2006Q4

REPORT INFORMATION
  Report Type: 
  Country: None (occurrence: None)
  Receive Date: 20061207
  Receipt Date: 20060801
  Transmission Date: 20070319
  Serious: Yes (Hospitalization)
  Sender: FDA-Public Use
  Company Number: JP-ELI_LILLY_AND_COMPANY-JP200608000826

PATIENT
  Age: 77 Year
  Sex: Female
  Weight: 46.9 kg

DRUGS (18)
  1. GEMZAR [Suspect]
     Indication: NON-SMALL CELL LUNG CANCER STAGE IV
     Dosage: 1200 MG, OTHER
     Route: 042
     Dates: start: 20050530, end: 20060718
  2. VINORELBINE [Concomitant]
     Indication: NON-SMALL CELL LUNG CANCER STAGE IV
     Dosage: 30 MG, OTHER
     Route: 042
     Dates: start: 20050530, end: 20060718
  3. EPOETIN ALFA [Concomitant]
  4. FAMOTIDINE [Concomitant]
  5. METHYLPREDNISOLONE SODIUM SUCCINATE [Concomitant]
  6. ONDANSETRON [Concomitant]
  7. DIAMOX #1 [Concomitant]
     Dosage: 250 MG, DAILY (1/D)
     Route: 048
  8. SPIRONOLACTONE [Concomitant]
     Dosage: 25 MG, DAILY (1/D)
     Route: 048
  9. ALFAROL [Concomitant]
     Dosage: 1 UG, DAILY (1/D)
     Route: 048
  10. CLARITHROMYCIN [Concomitant]
     Dosage: 200 MG, DAILY (1/D)
     Route: 048
  11. OMEPRAL [Concomitant]
     Dosage: 20 MG, DAILY (1/D)
     Route: 048
  12. DIGOXIN [Concomitant]
     Dosage: 125 UG, DAILY (1/D)
     Route: 048
  13. MAGNESIUM OXIDE [Concomitant]
     Dosage: 0.5 G, 3/D
     Route: 048
  14. BENFOTIAMINE [Concomitant]
     Dosage: 1 D/F, 3/D
  15. LEVOTHYROXINE SODIUM [Concomitant]
     Dosage: 150 UG, DAILY (1/D)
     Route: 048
  16. SENNOSIDE A [Concomitant]
     Dosage: 12 MG, DAILY (1/D)
     Route: 048
  17. SPIRIVA ^PFIZER^ [Concomitant]
     Dosage: 18 UG, DAILY (1/D)
     Route: 055
  18. TULOBUTEROL [Concomitant]
     Dosage: 2 MG, DAILY (1/D)
     Route: 062

REACTIONS (4)
  - CONDITION AGGRAVATED [None]
  - GENERAL PHYSICAL HEALTH DETERIORATION [None]
  - LYMPHOCYTE STIMULATION TEST POSITIVE [None]
  - PIGMENTATION DISORDER [None]
